FAERS Safety Report 10004715 (Version 2)
Quarter: 2014Q2

REPORT INFORMATION
  Report Type: Spontaneous
  Country: US (occurrence: US)
  Receive Date: 20140312
  Receipt Date: 20140416
  Transmission Date: 20141212
  Serious: Yes (Hospitalization)
  Sender: FDA-Public Use
  Company Number: US-GLAXOSMITHKLINE-A1063560A

PATIENT
  Age: 82 Year
  Sex: Female

DRUGS (4)
  1. ADVAIR HFA [Suspect]
     Indication: ASTHMA
     Dosage: 1PUFF TWICE PER DAY
     Route: 055
     Dates: end: 2014
  2. ADVAIR HFA [Suspect]
     Route: 065
     Dates: start: 2014
  3. MEDICATION FOR HIGH BLOOD PRESSURE [Concomitant]
  4. UNKNOWN [Concomitant]

REACTIONS (7)
  - Investigation [Recovered/Resolved]
  - Fall [Recovering/Resolving]
  - Upper limb fracture [Recovering/Resolving]
  - Wrist fracture [Recovering/Resolving]
  - Vision blurred [Unknown]
  - Drug ineffective [Unknown]
  - Product quality issue [Unknown]
